FAERS Safety Report 12696090 (Version 3)
Quarter: 2016Q4

REPORT INFORMATION
  Report Type: Report from Study
  Country: GB (occurrence: GB)
  Receive Date: 20160829
  Receipt Date: 20161216
  Transmission Date: 20170207
  Serious: Yes (Other)
  Sender: FDA-Public Use
  Company Number: GB-ALEXION PHARMACEUTICALS INC-A201605127

PATIENT
  Sex: Male

DRUGS (1)
  1. SOLIRIS [Suspect]
     Active Substance: ECULIZUMAB
     Indication: PRODUCT USED FOR UNKNOWN INDICATION
     Dosage: 1200 MG, Q2W
     Route: 042
     Dates: start: 20150814

REACTIONS (11)
  - Localised infection [Unknown]
  - Cellulitis [Unknown]
  - Tenderness [Unknown]
  - Sinus congestion [Unknown]
  - Skin maceration [Unknown]
  - Nasopharyngitis [Unknown]
  - Ingrowing nail [Unknown]
  - Erythema [Unknown]
  - Swelling [Not Recovered/Not Resolved]
  - Movement disorder [Unknown]
  - Pain [Unknown]
